FAERS Safety Report 8061725-2 (Version None)
Quarter: 2012Q1

REPORT INFORMATION
  Report Type: 
  Country: None (occurrence: None)
  Receive Date: 20120123
  Receipt Date: 20120111
  Transmission Date: 20120608
  Serious: Yes (Hospitalization)
  Sender: FDA-Public Use
  Company Number: DE-BIOGENIDEC-2012BI001535

PATIENT
  Age: 69 Year
  Sex: Male
  Weight: 70 kg

DRUGS (1)
  1. AVONEX [Suspect]
     Indication: RELAPSING-REMITTING MULTIPLE SCLEROSIS
     Route: 030
     Dates: start: 19960101, end: 20111007

REACTIONS (2)
  - MALIGNANT MELANOMA [None]
  - PANCREATIC CARCINOMA [None]
